FAERS Safety Report 4294454-1 (Version None)
Quarter: 2004Q1

REPORT INFORMATION
  Report Type: 
  Country: None (occurrence: None)
  Receive Date: 20040211
  Receipt Date: 20040206
  Transmission Date: 20041129
  Serious: Yes (Hospitalization)
  Sender: FDA-Public Use
  Company Number: 200410403GDS

PATIENT
  Age: 84 Year
  Sex: Female

DRUGS (5)
  1. ASPIRIN CARDIO (ACETYLSALICYLIC ACID) [Suspect]
     Indication: PROPHYLAXIS
     Dosage: 100 MG, QD, ORAL
     Route: 048
  2. HUMAN INSULIN (INSULIN HUMAN) [Suspect]
     Indication: DIABETES MELLITUS
     Dosage: 20-0-6-0 U, QID, SUBCUTANEOUS
     Route: 058
     Dates: start: 20031229, end: 20040117
  3. ROSIGLITAZONE MALEATE [Suspect]
     Indication: DIABETES MELLITUS
     Dosage: 8 MG, TOTAL DAILY, ORAL
     Route: 048
     Dates: end: 20040117
  4. ENALAPRIL [Suspect]
     Indication: HYPERTENSION
     Dosage: 20 MG, TOTAL DAILY, ORAL
     Route: 048
  5. TORSEMIDE [Concomitant]

REACTIONS (2)
  - HYPOGLYCAEMIA [None]
  - SOMNOLENCE [None]
